FAERS Safety Report 8080428-1 (Version None)
Quarter: 2012Q1

REPORT INFORMATION
  Report Type: 
  Country: None (occurrence: None)
  Receive Date: 20120130
  Receipt Date: 20120125
  Transmission Date: 20120608
  Serious: Yes (Hospitalization)
  Sender: FDA-Public Use
  Company Number: US-B.I. PHARMACEUTICALS,INC./RIDGEFIELD-2011-BP-22012BP

PATIENT
  Sex: Female
  Weight: 86.64 kg

DRUGS (6)
  1. ALLOPURINOL [Concomitant]
     Indication: GOUT
     Dosage: 100 MG
  2. ASPIRIN [Concomitant]
     Indication: CORONARY ARTERY DISEASE
     Dosage: 81 MG
     Dates: start: 20110819
  3. ASPIRIN [Concomitant]
     Indication: PERIPHERAL VASCULAR DISORDER
  4. BYSTOLIC [Concomitant]
     Indication: HYPERTENSION
     Dosage: 50 MG
  5. CRESTOR [Concomitant]
     Indication: BLOOD CHOLESTEROL
     Dosage: 5 MG
  6. PRADAXA [Suspect]
     Indication: ATRIAL FIBRILLATION
     Dosage: 150 MG
     Route: 048
     Dates: start: 20110819, end: 20110820

REACTIONS (3)
  - ANAEMIA [None]
  - GASTROINTESTINAL HAEMORRHAGE [None]
  - MELAENA [None]
